FAERS Safety Report 24261070 (Version 2)
Quarter: 2024Q3

REPORT INFORMATION
  Report Type: Spontaneous
  Country: EG (occurrence: EG)
  Receive Date: 20240829
  Receipt Date: 20240923
  Transmission Date: 20241017
  Serious: Yes (Hospitalization, Other)
  Sender: NOVO NORDISK
  Company Number: EG-NOVOPROD-1272643

PATIENT
  Age: 856 Month
  Sex: Female
  Weight: 84 kg

DRUGS (4)
  1. CYANOCOBALAMIN [Concomitant]
     Active Substance: CYANOCOBALAMIN
     Indication: Nervous system disorder
     Dosage: UNK, 1 TAB/DAY
     Route: 048
  2. INSULIN HUMAN [Suspect]
     Active Substance: INSULIN HUMAN
     Indication: Type 2 diabetes mellitus
     Dosage: 60 IU, QD (40 U/MORNING AND 20 U/NIGHT)
     Route: 058
     Dates: start: 2014
  3. DAVALINDI [Concomitant]
     Indication: Vitamin supplementation
     Dosage: UNK ONCE /MONTH
     Route: 030
  4. BIOVIT B12 [Concomitant]
     Indication: Nervous system disorder
     Dosage: UNK, ONCE/WEEK
     Route: 030

REACTIONS (3)
  - Retinal fibrosis [Not Recovered/Not Resolved]
  - Retinal infiltrates [Not Recovered/Not Resolved]
  - Visual impairment [Unknown]

NARRATIVE: CASE EVENT DATE: 20160101
